FAERS Safety Report 14512141 (Version 1)
Quarter: 2018Q1

REPORT INFORMATION
  Report Type: Spontaneous
  Country: US (occurrence: US)
  Receive Date: 20180209
  Receipt Date: 20180209
  Transmission Date: 20180509
  Serious: Yes (Other)
  Sender: FDA-Public Use
  Company Number: US-ALLERGAN-1806407US

PATIENT
  Age: 18 Year
  Sex: Male
  Weight: 72.56 kg

DRUGS (2)
  1. BENZOYL PEROXIDE W/CLINDAMYCIN [Concomitant]
     Active Substance: BENZOYL PEROXIDE\CLINDAMYCIN PHOSPHATE
     Route: 065
  2. TAZAROTENE - BP [Suspect]
     Active Substance: TAZAROTENE
     Indication: ACNE
     Dosage: UNK
     Route: 065
     Dates: start: 201710, end: 201801

REACTIONS (4)
  - Depression [Unknown]
  - Lethargy [Unknown]
  - Blood triglycerides increased [Unknown]
  - Liver function test increased [Unknown]

NARRATIVE: CASE EVENT DATE: 201801
